FAERS Safety Report 18934967 (Version 1)
Quarter: 2021Q1

REPORT INFORMATION
  Report Type: Spontaneous
  Country: US (occurrence: US)
  Receive Date: 20210224
  Receipt Date: 20210224
  Transmission Date: 20210420
  Serious: Yes (Other)
  Sender: FDA-Public Use
  Company Number: US-BAUSCH-BL-2021-005397

PATIENT
  Age: 77 Year
  Sex: Female
  Weight: 90.8 kg

DRUGS (1)
  1. NEOMYCIN AND POLYMYXIN B SULFATES AND DEXAMETHASONE OPHTHALMIC OINT [Suspect]
     Active Substance: DEXAMETHASONE\NEOMYCIN\POLYMYXIN B SULFATE
     Indication: EYE INFECTION
     Dosage: ONCE DAILY AT BEDTIME
     Route: 047
     Dates: start: 202102

REACTIONS (4)
  - Vision blurred [Recovered/Resolved]
  - Eye injury [Unknown]
  - Glaucoma drainage device placement [Unknown]
  - Eye pain [Unknown]

NARRATIVE: CASE EVENT DATE: 202102
